FAERS Safety Report 11793506 (Version 1)
Quarter: 2015Q4

REPORT INFORMATION
  Report Type: Spontaneous
  Country: US (occurrence: US)
  Receive Date: 20151202
  Receipt Date: 20151202
  Transmission Date: 20160305
  Serious: No
  Sender: FDA-Public Use
  Company Number: US-IROKO PHARMACEUTICALS LLC-US-I09001-14-00206

PATIENT
  Sex: Female

DRUGS (3)
  1. ZORVOLEX [Suspect]
     Active Substance: DICLOFENAC
     Route: 065
     Dates: start: 20140922
  2. ZORVOLEX [Suspect]
     Active Substance: DICLOFENAC
     Route: 065
     Dates: start: 20140813
  3. ZORVOLEX [Suspect]
     Active Substance: DICLOFENAC
     Indication: PROCEDURAL PAIN
     Route: 065
     Dates: start: 20140626, end: 20140630

REACTIONS (1)
  - Headache [Recovered/Resolved]

NARRATIVE: CASE EVENT DATE: 201406
